FAERS Safety Report 25802502 (Version 2)
Quarter: 2025Q3

REPORT INFORMATION
  Report Type: Report from Study
  Country: CN (occurrence: CN)
  Receive Date: 20250915
  Receipt Date: 20250923
  Transmission Date: 20251020
  Serious: Yes (Other)
  Sender: GILEAD
  Company Number: CN-GILEAD-2025-0728297

PATIENT

DRUGS (2)
  1. SOFOSBUVIR\VELPATASVIR [Suspect]
     Active Substance: SOFOSBUVIR\VELPATASVIR
     Indication: Chronic hepatitis C
     Dosage: 500 MG ORALLY ONCE A DAY
     Route: 048
  2. RIBAVIRIN [Concomitant]
     Active Substance: RIBAVIRIN
     Dosage: 0.3 G ORALLY, 3 TIMES A DAY
     Route: 048

REACTIONS (1)
  - Haemolytic anaemia [Unknown]
